FAERS Safety Report 7784189-2 (Version None)
Quarter: 2011Q3

REPORT INFORMATION
  Report Type: 
  Country: None (occurrence: None)
  Receive Date: 20110926
  Receipt Date: 20110913
  Transmission Date: 20111222
  Serious: Yes (Death)
  Sender: FDA-Public Use
  Company Number: UTC-010189

PATIENT
  Age: 16 Year
  Sex: Male

DRUGS (3)
  1. REMODULIN [Suspect]
     Dosage: 23.04 UG/KG (0.016 UG/KG, 1 IN 1 MIN), SUBCUTANEOUS
     Route: 058
  2. BOSENTAN (BOSENTAN) [Concomitant]
  3. SILDENAFIL CITRATE [Concomitant]

REACTIONS (3)
  - PULMONARY HYPERTENSION [None]
  - RESPIRATORY FAILURE [None]
  - GENERAL PHYSICAL HEALTH DETERIORATION [None]
